FAERS Safety Report 6972088-5 (Version None)
Quarter: 2010Q3

REPORT INFORMATION
  Report Type: 
  Country: None (occurrence: None)
  Receive Date: 20100909
  Receipt Date: 20100901
  Transmission Date: 20110219
  Serious: Yes (Hospitalization)
  Sender: FDA-Public Use
  Company Number: US-BIOGENIDEC-2010BI026121

PATIENT
  Age: 56 Year
  Sex: Female

DRUGS (5)
  1. TYSABRI [Suspect]
     Indication: MULTIPLE SCLEROSIS
     Route: 042
     Dates: start: 20080226, end: 20100602
  2. PAMELOR [Concomitant]
     Dates: start: 19930101, end: 19941201
  3. PAMELOR [Concomitant]
     Dates: start: 19941201
  4. ZANAFLEX [Concomitant]
     Dates: start: 20020101
  5. NEURONTIN [Concomitant]
     Dates: start: 20020101

REACTIONS (2)
  - PROGRESSIVE MULTIFOCAL LEUKOENCEPHALOPATHY [None]
  - URINARY TRACT INFECTION [None]
